FAERS Safety Report 10790650 (Version 1)
Quarter: 2015Q1

REPORT INFORMATION
  Report Type: Report from Study
  Country: AR (occurrence: AR)
  Receive Date: 20150212
  Receipt Date: 20150212
  Transmission Date: 20150721
  Serious: Yes (Other)
  Sender: FDA-Public Use
  Company Number: PHHY2015AR017051

PATIENT
  Sex: Male

DRUGS (1)
  1. EXFORGE [Suspect]
     Active Substance: AMLODIPINE BESYLATE\VALSARTAN
     Indication: HYPERTENSION
     Dosage: 0.5 DF (10 UNITS NOT REPORTED), QD
     Route: 048

REACTIONS (3)
  - Lung disorder [Recovered/Resolved]
  - Off label use [Unknown]
  - Wrong technique in drug usage process [Recovered/Resolved]
